FAERS Safety Report 21226130 (Version 1)
Quarter: 2022Q3

REPORT INFORMATION
  Report Type: Spontaneous
  Country: US (occurrence: US)
  Receive Date: 20220818
  Receipt Date: 20220818
  Transmission Date: 20221027
  Serious: Yes (Other)
  Sender: FDA-Public Use
  Company Number: US-SA-SAC20220812001750

PATIENT
  Age: 21 Year
  Sex: Female

DRUGS (2)
  1. ZANTAC [Suspect]
     Active Substance: RANITIDINE HYDROCHLORIDE
     Indication: Gastrooesophageal reflux disease
     Dosage: 25 MG FREQUENCY :OTHER
     Route: 065
     Dates: start: 198303
  2. ZANTAC [Suspect]
     Active Substance: RANITIDINE HYDROCHLORIDE
     Indication: Abdominal discomfort
     Dosage: 300 MG FREQUENCY :OTHER
     Route: 065
     Dates: end: 201811

REACTIONS (3)
  - Ovarian cancer stage III [Not Recovered/Not Resolved]
  - Disease progression [Not Recovered/Not Resolved]
  - Cervix carcinoma [Unknown]

NARRATIVE: CASE EVENT DATE: 20050310
